FAERS Safety Report 21574835 (Version 1)
Quarter: 2022Q4

REPORT INFORMATION
  Report Type: Spontaneous
  Country: GB (occurrence: GB)
  Receive Date: 20221110
  Receipt Date: 20221110
  Transmission Date: 20230112
  Serious: Yes (Hospitalization, Other)
  Sender: FDA-Public Use
  Company Number: None

PATIENT
  Age: 92 Year
  Sex: Female

DRUGS (14)
  1. OMEPRAZOLE [Suspect]
     Active Substance: OMEPRAZOLE
  2. DEXAMETHASONE [Concomitant]
     Active Substance: DEXAMETHASONE
     Dosage: 2MG TABLETS 6MG OM
     Dates: start: 20220405, end: 20220413
  3. ENOXAPARIN [Concomitant]
     Active Substance: ENOXAPARIN
  4. FLUOXETINE [Concomitant]
     Active Substance: FLUOXETINE HYDROCHLORIDE
     Dosage: 20MG CAPSULES 1OM
  5. LEVOTHYROXINE [Concomitant]
     Active Substance: LEVOTHYROXINE
     Dosage: 25MICROGRAM TABLETS 1OM
  6. LEVOTHYROXINE [Concomitant]
     Active Substance: LEVOTHYROXINE
     Dosage: 50MICROGRAM TABLETS 1OM
  7. MORPHINE [Concomitant]
     Active Substance: MORPHINE
     Dosage: 10MG/5ML ORAL SOLUTION 2.5MG TO 5MG 4 HOURLY PRN
  8. OMEPRAZOLE [Suspect]
     Active Substance: OMEPRAZOLE
     Dosage: 20MG GASTRO-RESISTANT CAPSULES 1OM
  9. ACETAMINOPHEN [Concomitant]
     Active Substance: ACETAMINOPHEN
     Dosage: 500MG QDS PRN (OR IV 525MG)
  10. FOLIC ACID [Concomitant]
     Active Substance: FOLIC ACID
     Dosage: 5MG TABLETS 1OM
  11. SENNA [Concomitant]
     Active Substance: SENNA LEAF\SENNOSIDES\SENNOSIDES A AND B
     Dosage: 7.5MG TABLETS 2ON
  12. CHOLECALCIFEROL [Concomitant]
     Active Substance: CHOLECALCIFEROL
     Dosage: 800UNIT CAPSULES 1OM
  13. POLYETHYLENE GLYCOLS [Concomitant]
     Active Substance: POLYETHYLENE GLYCOLS
     Dosage: TAKE ONE TWICE A DAY
  14. ENOXAPARIN [Concomitant]
     Active Substance: ENOXAPARIN
     Dosage: 20MG S/C TEATIME

REACTIONS (3)
  - Osteoporosis [Recovered/Resolved]
  - Fall [Unknown]
  - Femoral neck fracture [Unknown]
